FAERS Safety Report 7574077-9 (Version None)
Quarter: 2011Q2

REPORT INFORMATION
  Report Type: 
  Country: None (occurrence: None)
  Receive Date: 20110627
  Receipt Date: 20110620
  Transmission Date: 20111010
  Serious: Yes (Hospitalization)
  Sender: FDA-Public Use
  Company Number: VE-GENZYME-POMP-1001611

PATIENT
  Sex: Male

DRUGS (1)
  1. MYOZYME [Suspect]
     Indication: GLYCOGEN STORAGE DISEASE TYPE II
     Dosage: 500 MG, Q2W
     Route: 042
     Dates: start: 20050101

REACTIONS (5)
  - ASTHENIA [None]
  - PYREXIA [None]
  - DYSPNOEA [None]
  - PSEUDOMONAS INFECTION [None]
  - CANDIDIASIS [None]
